FAERS Safety Report 6385533-3 (Version None)
Quarter: 2009Q4

REPORT INFORMATION
  Report Type: 
  Country: None (occurrence: None)
  Receive Date: 20091002
  Receipt Date: 20080911
  Transmission Date: 20100525
  Serious: No
  Sender: FDA-Public Use
  Company Number: US-ASTRAZENECA-2008UW18866

PATIENT
  Age: 79 Year
  Sex: Female
  Weight: 72.6 kg

DRUGS (4)
  1. ARIMIDEX [Suspect]
     Indication: BREAST CANCER
     Route: 048
  2. ZOCOR [Suspect]
     Route: 065
  3. ADVAIR DISKUS 100/50 [Concomitant]
  4. ACTONEL [Concomitant]

REACTIONS (4)
  - ARTHRALGIA [None]
  - HYPOKINESIA [None]
  - MYALGIA [None]
  - PARAESTHESIA [None]
